FAERS Safety Report 19811698 (Version 1)
Quarter: 2021Q3

REPORT INFORMATION
  Report Type: Spontaneous
  Country: CA (occurrence: CA)
  Receive Date: 20210910
  Receipt Date: 20210910
  Transmission Date: 20211014
  Serious: Yes (Hospitalization, Other)
  Sender: FDA-Public Use
  Company Number: CA-TEVA-2021-CA-1949525

PATIENT
  Age: 53 Year
  Sex: Female
  Weight: 50 kg

DRUGS (4)
  1. ATORVASTATIN [Suspect]
     Active Substance: ATORVASTATIN
     Route: 065
  2. QUETIAPINE. [Suspect]
     Active Substance: QUETIAPINE
     Route: 065
  3. VALPROIC ACID. [Suspect]
     Active Substance: VALPROIC ACID
     Route: 065
  4. NALTREXONE [Suspect]
     Active Substance: NALTREXONE
     Route: 065

REACTIONS (5)
  - Intentional overdose [Unknown]
  - Depressed level of consciousness [Unknown]
  - Suicide attempt [Unknown]
  - Hyperammonaemia [Unknown]
  - Toxicity to various agents [Unknown]
